FAERS Safety Report 9222013 (Version 4)
Quarter: 2013Q3

REPORT INFORMATION
  Report Type: Spontaneous
  Country: US (occurrence: US)
  Receive Date: 20130410
  Receipt Date: 20130704
  Transmission Date: 20140515
  Serious: No
  Sender: FDA-Public Use
  Company Number: US-PFIZER INC-2013109065

PATIENT
  Age: 68 Year
  Sex: Male

DRUGS (7)
  1. HEPARIN SODIUM [Suspect]
     Indication: CARDIOPULMONARY BYPASS
     Dosage: 350 UNITS/ KG, 40000 UNITS
     Route: 042
     Dates: start: 20130404, end: 20130404
  2. HEPARIN SODIUM [Suspect]
     Indication: COAGULOPATHY
     Dosage: UNK
     Route: 042
     Dates: start: 20130404, end: 20130404
  3. HEPARIN SODIUM [Suspect]
     Dosage: UNK
     Route: 042
     Dates: start: 20130404, end: 20130404
  4. HEPARIN SODIUM [Suspect]
     Dosage: UNK
     Route: 042
     Dates: start: 20130404, end: 20130404
  5. HEPARIN SODIUM [Suspect]
     Dosage: UNK
     Route: 042
     Dates: start: 20130404, end: 20130404
  6. HEPARIN SODIUM [Suspect]
     Dosage: UNK
     Route: 042
     Dates: start: 20130404, end: 20130404
  7. HEPARIN SODIUM [Suspect]
     Dosage: UNK
     Route: 042
     Dates: start: 20130404, end: 20130404

REACTIONS (2)
  - Drug ineffective [Recovered/Resolved]
  - Heparin resistance [Recovered/Resolved]
